FAERS Safety Report 9603801 (Version 2)
Quarter: 2013Q4

REPORT INFORMATION
  Report Type: Spontaneous
  Country: MY (occurrence: MY)
  Receive Date: 20131008
  Receipt Date: 20131031
  Transmission Date: 20140711
  Serious: Yes (Death, Hospitalization)
  Sender: FDA-Public Use
  Company Number: PHHY2013MY108094

PATIENT
  Age: 28 Year
  Sex: Male

DRUGS (2)
  1. VALPROIC ACID [Suspect]
     Indication: MANIA
     Dosage: 500 MG, DAILY
  2. OLANZAPINE [Suspect]
     Indication: MANIA
     Dosage: 2.5 MG AT NIGHT

REACTIONS (35)
  - Death [Fatal]
  - Adrenoleukodystrophy [Unknown]
  - Bipolar I disorder [Unknown]
  - Clonus [Unknown]
  - Cognitive disorder [Unknown]
  - Abasia [Unknown]
  - Blindness [Unknown]
  - Disturbance in attention [Unknown]
  - Hyperreflexia [Unknown]
  - Hypertonia [Unknown]
  - Memory impairment [Unknown]
  - Addison^s disease [Unknown]
  - Hyponatraemia [Unknown]
  - Adrenocortical insufficiency acute [Unknown]
  - Metabolic acidosis [Unknown]
  - Blood cortisol decreased [Unknown]
  - Vomiting [Unknown]
  - Shock [Unknown]
  - Nausea [Unknown]
  - Neuroleptic malignant syndrome [Unknown]
  - Coma scale abnormal [Unknown]
  - Gait disturbance [Unknown]
  - Pyrexia [Unknown]
  - Chills [Unknown]
  - Hypotension [Unknown]
  - Headache [Unknown]
  - Cyanosis central [Unknown]
  - Cyanosis [Unknown]
  - Pulse abnormal [Unknown]
  - Aphasia [Unknown]
  - Hypophagia [Unknown]
  - Dehydration [Unknown]
  - Urine ketone body present [Unknown]
  - Inappropriate antidiuretic hormone secretion [Unknown]
  - Somnolence [Unknown]
